FAERS Safety Report 20552678 (Version 1)
Quarter: 2022Q1

REPORT INFORMATION
  Report Type: Spontaneous
  Country: US (occurrence: US)
  Receive Date: 20220304
  Receipt Date: 20220304
  Transmission Date: 20220423
  Serious: Yes (Hospitalization)
  Sender: FDA-Public Use
  Company Number: US-UNITED THERAPEUTICS-UNT-2021-011050

PATIENT
  Sex: Female

DRUGS (4)
  1. REMODULIN [Suspect]
     Active Substance: TREPROSTINIL
     Indication: Pulmonary arterial hypertension
     Dosage: UNK, CONTINUING
     Route: 058
     Dates: start: 20210421
  2. REMODULIN [Suspect]
     Active Substance: TREPROSTINIL
     Dosage: 0.0224 ?G/KG, CONTINUING
     Route: 058
     Dates: start: 2021
  3. OFEV [Concomitant]
     Active Substance: NINTEDANIB
     Indication: Idiopathic pulmonary fibrosis
     Dosage: 200 MG, QD (1 EVERY 1 DAY)
     Route: 048
     Dates: start: 20210518
  4. OFEV [Concomitant]
     Active Substance: NINTEDANIB
     Dosage: 100 MG, QD (1 EVERY 1 DAY)
     Route: 048

REACTIONS (2)
  - Chest pain [Unknown]
  - Oral pain [Unknown]

NARRATIVE: CASE EVENT DATE: 20210101
